FAERS Safety Report 7263831-9 (Version None)
Quarter: 2011Q1

REPORT INFORMATION
  Report Type: 
  Country: None (occurrence: None)
  Receive Date: 20110130
  Receipt Date: 20101206
  Transmission Date: 20110831
  Serious: No
  Sender: FDA-Public Use
  Company Number: US-ABBOTT-10P-163-0689922-00

PATIENT
  Age: 66 Year
  Sex: Female

DRUGS (5)
  1. VIT D [Concomitant]
     Indication: PRODUCT USED FOR UNKNOWN INDICATION
  2. MORPHINE [Concomitant]
     Indication: PRODUCT USED FOR UNKNOWN INDICATION
  3. HUMIRA [Suspect]
     Indication: CROHN'S DISEASE
     Dates: start: 20101104
  4. SLOW MORPHINE [Concomitant]
     Indication: PRODUCT USED FOR UNKNOWN INDICATION
  5. ONDANSETRON [Concomitant]
     Indication: NAUSEA

REACTIONS (7)
  - DEHYDRATION [None]
  - MALAISE [None]
  - WEIGHT DECREASED [None]
  - PAIN [None]
  - NAUSEA [None]
  - VOMITING [None]
  - DECREASED APPETITE [None]
